FAERS Safety Report 25543051 (Version 1)
Quarter: 2025Q3

REPORT INFORMATION
  Report Type: Spontaneous
  Country: EU (occurrence: EU)
  Receive Date: 20250711
  Receipt Date: 20250711
  Transmission Date: 20251020
  Serious: Yes (Hospitalization)
  Sender: ABBVIE
  Company Number: None

PATIENT
  Age: 56 Year
  Sex: Male
  Weight: 138 kg

DRUGS (20)
  1. BRIMONIDINE [Suspect]
     Active Substance: BRIMONIDINE TARTRATE
     Indication: Retinal detachment
     Route: 047
     Dates: start: 20250620, end: 20250620
  2. DORZOLAMIDE [Suspect]
     Active Substance: DORZOLAMIDE
     Indication: Retinal detachment
     Route: 031
     Dates: start: 20250620, end: 20250622
  3. PREDNISONE [Suspect]
     Active Substance: PREDNISONE
     Indication: Retinal detachment
     Route: 048
     Dates: start: 20250619, end: 20250620
  4. PREDNISONE [Suspect]
     Active Substance: PREDNISONE
     Indication: Retinal detachment
     Route: 048
     Dates: start: 20250613, end: 20250618
  5. POLYETHYLENE GLYCOL 4000 [Suspect]
     Active Substance: POLYETHYLENE GLYCOL 4000
     Indication: Constipation
     Route: 048
     Dates: start: 20250620
  6. ACETAMINOPHEN [Suspect]
     Active Substance: ACETAMINOPHEN
     Indication: Pain
     Route: 048
  7. ACUPAN [Suspect]
     Active Substance: NEFOPAM HYDROCHLORIDE
     Indication: Pain
     Route: 048
     Dates: start: 20250620, end: 20250622
  8. ATORVASTATIN [Suspect]
     Active Substance: ATORVASTATIN
     Indication: Dyslipidaemia
     Route: 048
  9. HUMALOG [Suspect]
     Active Substance: INSULIN LISPRO
     Indication: Insulin-requiring type 2 diabetes mellitus
     Route: 058
     Dates: start: 20250620
  10. TROPICAMIDE [Suspect]
     Active Substance: TROPICAMIDE
     Indication: Retinal detachment
     Route: 031
     Dates: start: 20250621, end: 20250622
  11. OZEMPIC [Suspect]
     Active Substance: SEMAGLUTIDE
     Indication: Insulin-requiring type 2 diabetes mellitus
     Route: 058
  12. SILDENAFIL [Suspect]
     Active Substance: SILDENAFIL
     Indication: Product used for unknown indication
     Route: 058
  13. LOPERAMIDE [Suspect]
     Active Substance: LOPERAMIDE
     Indication: Prophylaxis
     Route: 048
  14. MANNITOL [Suspect]
     Active Substance: MANNITOL
     Indication: Product used for unknown indication
     Route: 042
     Dates: start: 20250620, end: 20250620
  15. INSULIN GLARGINE [Suspect]
     Active Substance: INSULIN GLARGINE
     Indication: Insulin-requiring type 2 diabetes mellitus
     Dosage: 300 UNIT S/ML, SOLUTION INJECTABLE
     Route: 058
  16. DEXAMETHASONE SODIUM PHOSPHATE [Suspect]
     Active Substance: DEXAMETHASONE SODIUM PHOSPHATE
     Indication: Retinal detachment
     Dosage: 1 MG/ML, COLLYRE EN SOLUTION
     Route: 065
     Dates: start: 20250621
  17. METFORMIN PAMOATE [Suspect]
     Active Substance: METFORMIN PAMOATE
     Indication: Insulin-requiring type 2 diabetes mellitus
     Route: 048
  18. DIAMOX SEQUELS [Suspect]
     Active Substance: ACETAZOLAMIDE
     Indication: Product used for unknown indication
     Dosage: 250 MG
     Route: 048
     Dates: start: 20250619, end: 20250628
  19. REPAGLINIDE [Suspect]
     Active Substance: REPAGLINIDE
     Indication: Insulin-requiring type 2 diabetes mellitus
     Route: 048
     Dates: end: 20250626
  20. TIMOLOL [Suspect]
     Active Substance: TIMOLOL
     Indication: Retinal detachment
     Route: 031
     Dates: start: 20250620, end: 20250625

REACTIONS (1)
  - Ischaemic stroke [Recovered/Resolved]

NARRATIVE: CASE EVENT DATE: 20250621
